FAERS Safety Report 11837315 (Version 2)
Quarter: 2016Q1

REPORT INFORMATION
  Report Type: Spontaneous
  Country: JP (occurrence: JP)
  Receive Date: 20151215
  Receipt Date: 20160118
  Transmission Date: 20160525
  Serious: Yes (Death)
  Sender: FDA-Public Use
  Company Number: JP-SA-2015SA211252

PATIENT
  Age: 71 Year
  Sex: Male

DRUGS (2)
  1. TAXOTERE [Suspect]
     Active Substance: DOCETAXEL
     Indication: PROSTATE CANCER
     Route: 042
     Dates: start: 20151120, end: 20151120
  2. DECADRON [Concomitant]
     Active Substance: DEXAMETHASONE
     Dates: start: 20151120, end: 20151120

REACTIONS (4)
  - Dehydration [Fatal]
  - Respiratory failure [Fatal]
  - Pulmonary haemorrhage [Fatal]
  - Circulatory collapse [Fatal]

NARRATIVE: CASE EVENT DATE: 20151128
